FAERS Safety Report 23570787 (Version 2)
Quarter: 2024Q1

REPORT INFORMATION
  Report Type: Spontaneous
  Country: HU (occurrence: HU)
  Receive Date: 20240227
  Receipt Date: 20240325
  Transmission Date: 20240410
  Serious: Yes (Other)
  Sender: FDA-Public Use
  Company Number: HU-BAXTER-2024BAX013261

PATIENT
  Age: 35 Year
  Sex: Female

DRUGS (20)
  1. DOXORUBICIN [Suspect]
     Active Substance: DOXORUBICIN
     Indication: High-grade B-cell lymphoma
     Dosage: CYCLIC (INFUSION, ON THE THIRD DAY, 1ST RCHOP CYCLE)/ON 2ND DAY
     Route: 065
     Dates: start: 20210610
  2. DOXORUBICIN [Suspect]
     Active Substance: DOXORUBICIN
     Indication: Follicular lymphoma
  3. CYCLOPHOSPHAMIDE [Suspect]
     Active Substance: CYCLOPHOSPHAMIDE
     Indication: High-grade B-cell lymphoma
     Dosage: CYCLIC (50-50 PERCENT ON THE FIRST AND THE SECOND DAY, 1ST RCHOP CYCLE)
     Route: 065
     Dates: start: 20210610
  4. CYCLOPHOSPHAMIDE [Suspect]
     Active Substance: CYCLOPHOSPHAMIDE
     Indication: Follicular lymphoma
  5. PREDNISOLONE [Suspect]
     Active Substance: PREDNISOLONE
     Indication: Follicular lymphoma
     Dosage: CYCLIC (1ST RCHOP CYCLE)
     Route: 065
     Dates: start: 20210610
  6. PREDNISOLONE [Suspect]
     Active Substance: PREDNISOLONE
     Indication: High-grade B-cell lymphoma
  7. VINCRISTINE [Suspect]
     Active Substance: VINCRISTINE
     Indication: High-grade B-cell lymphoma
     Dosage: CYCLIC (INFUSION, ON THE THIRD DAY, 1ST RCHOP CYCLE)
     Route: 065
     Dates: start: 20210610
  8. VINCRISTINE [Suspect]
     Active Substance: VINCRISTINE
     Indication: Follicular lymphoma
  9. DEXAMETHASONE [Suspect]
     Active Substance: DEXAMETHASONE
     Indication: Follicular lymphoma
     Dosage: CYCLE 4
     Route: 065
  10. CISPLATIN [Suspect]
     Active Substance: CISPLATIN
     Indication: Follicular lymphoma
     Dosage: CYCLE 4
     Route: 065
  11. OBINUTUZUMAB [Suspect]
     Active Substance: OBINUTUZUMAB
     Indication: Follicular lymphoma
     Dosage: CYCLE 4
     Route: 065
  12. OBINUTUZUMAB [Suspect]
     Active Substance: OBINUTUZUMAB
     Indication: Prophylaxis against transplant rejection
  13. RITUXIMAB [Suspect]
     Active Substance: RITUXIMAB
     Indication: Follicular lymphoma
     Dosage: CYCLIC (INFUSION, 1ST RCHOP CYCLE) (500 ML)
     Route: 042
     Dates: start: 20210610
  14. RITUXIMAB [Suspect]
     Active Substance: RITUXIMAB
     Dosage: CYCLIC (2ND RCHOP CYCLE) (100 ML)
     Route: 042
  15. CYTARABINE [Suspect]
     Active Substance: CYTARABINE
     Indication: Prophylaxis against transplant rejection
     Dosage: CYCLE 4
     Route: 065
  16. CYTARABINE [Suspect]
     Active Substance: CYTARABINE
     Indication: Follicular lymphoma
  17. RASBURICASE [Concomitant]
     Active Substance: RASBURICASE
     Indication: Prophylaxis
     Dosage: UNK
     Route: 065
  18. MELPHALAN [Concomitant]
     Active Substance: MELPHALAN
     Indication: Prophylaxis against transplant rejection
     Route: 065
  19. ETOPOSIDE [Concomitant]
     Active Substance: ETOPOSIDE
     Indication: Prophylaxis against transplant rejection
     Route: 065
  20. CARMUSTINE [Concomitant]
     Active Substance: CARMUSTINE
     Indication: Prophylaxis against transplant rejection
     Route: 065

REACTIONS (6)
  - Hypertensive crisis [Recovered/Resolved]
  - Malignant neoplasm progression [Recovered/Resolved]
  - Follicular lymphoma [Recovered/Resolved]
  - Tremor [Unknown]
  - Chills [Unknown]
  - Pyrexia [Recovered/Resolved]
